FAERS Safety Report 9382053 (Version 1)
Quarter: 2013Q3

REPORT INFORMATION
  Report Type: Report from Study
  Country: DE (occurrence: DE)
  Receive Date: 20130703
  Receipt Date: 20130703
  Transmission Date: 20140515
  Serious: Yes (Death, Hospitalization)
  Sender: FDA-Public Use
  Company Number: DE-ELI_LILLY_AND_COMPANY-DE201307000035

PATIENT
  Age: 73 Year
  Sex: Male

DRUGS (12)
  1. GEMCITABINE HYDROCHLORIDE [Suspect]
     Indication: PANCREATIC CARCINOMA
     Dosage: 2000 MG, UNK
     Dates: end: 20130213
  2. OTHER PHARMA COMPANY INV DRUG [Suspect]
     Indication: PANCREATIC CARCINOMA
     Dosage: UNK
     Route: 048
     Dates: end: 20130221
  3. PANTOZOL                           /01263204/ [Concomitant]
     Dosage: 40 MG, UNK
  4. KREON [Concomitant]
     Dosage: 1000000 IU, UNK
  5. DELIX [Concomitant]
     Dosage: 5 MG, UNK
  6. NITRENDIPINE [Concomitant]
     Dosage: 20 MG, UNK
  7. CLONIDINE [Concomitant]
     Dosage: 250 MG, UNK
  8. TAMSULOSINE HCL A [Concomitant]
     Dosage: 0.4 MG, UNK
  9. LANTUS [Concomitant]
     Dosage: 14 IU, UNK
  10. INSUMAN RAPID [Concomitant]
  11. CLONIDIN [Concomitant]
     Dosage: 0.75 MG, UNK
  12. HYDROCHLOROTHIAZIDE [Concomitant]
     Dosage: UNK

REACTIONS (2)
  - Sepsis [Fatal]
  - Atypical pneumonia [Fatal]
